FAERS Safety Report 22945793 (Version 9)
Quarter: 2023Q4

REPORT INFORMATION
  Report Type: Report from Study
  Country: AU (occurrence: AU)
  Receive Date: 20230914
  Receipt Date: 20231031
  Transmission Date: 20240110
  Serious: Yes (Death, Hospitalization)
  Sender: FDA-Public Use
  Company Number: AU-JNJFOC-20230814074

PATIENT
  Age: 73 Year
  Sex: Female
  Weight: 43 kg

DRUGS (24)
  1. MACITENTAN [Suspect]
     Active Substance: MACITENTAN
     Indication: Pulmonary arterial hypertension
     Route: 048
  2. SELEXIPAG [Suspect]
     Active Substance: SELEXIPAG
     Indication: Pulmonary arterial hypertension
     Route: 048
     Dates: start: 20230815
  3. SELEXIPAG [Suspect]
     Active Substance: SELEXIPAG
     Route: 048
     Dates: start: 20230904
  4. SELEXIPAG [Suspect]
     Active Substance: SELEXIPAG
     Route: 048
     Dates: end: 20230910
  5. SELEXIPAG [Suspect]
     Active Substance: SELEXIPAG
     Route: 048
     Dates: start: 20230911, end: 20230915
  6. SELEXIPAG [Suspect]
     Active Substance: SELEXIPAG
     Dosage: DAILY
     Route: 048
     Dates: start: 20230828, end: 202309
  7. EPOPROSTENOL SODIUM [Suspect]
     Active Substance: EPOPROSTENOL SODIUM
     Indication: Pulmonary arterial hypertension
     Route: 042
     Dates: start: 202309
  8. EPOPROSTENOL SODIUM [Suspect]
     Active Substance: EPOPROSTENOL SODIUM
     Dosage: 100MCG IN 50ML BEING INFUSED AT 8.4ML/HR EQUIVALENT OF 7 NANOGRAMS
     Route: 042
  9. NEBIVOLOL [Concomitant]
     Active Substance: NEBIVOLOL
     Indication: Product used for unknown indication
     Dosage: NEBILET 1.25MG MID AFTERNOON
     Route: 065
  10. TADALAFIL [Concomitant]
     Active Substance: TADALAFIL
     Route: 065
  11. SILDENAFIL [Concomitant]
     Active Substance: SILDENAFIL
     Route: 065
  12. ROSUVASTATIN [Concomitant]
     Active Substance: ROSUVASTATIN
     Dosage: ROSUVASTATIN SANDOS 5MG - MIDDAY
     Route: 048
  13. PANTOPRAZOLE SODIUM [Concomitant]
     Active Substance: PANTOPRAZOLE SODIUM
     Dosage: SOMAC 40MG NOCTE
  14. MAGNESIUM ASPARTATE [Concomitant]
     Active Substance: MAGNESIUM ASPARTATE
     Dosage: MAGMIN 1 TABLET NOCTE
     Route: 048
  15. METHYLPREDNISOLONE ACEPONATE [Concomitant]
     Active Substance: METHYLPREDNISOLONE ACEPONATE
  16. FUROSEMIDE [Concomitant]
     Active Substance: FUROSEMIDE
     Dosage: FRUSEMIDE 20MG, AND 40MG ON ALTERNATE DAYS
  17. FUROSEMIDE [Concomitant]
     Active Substance: FUROSEMIDE
     Dosage: 20MG, AND 40MG
  18. FUROSEMIDE [Concomitant]
     Active Substance: FUROSEMIDE
     Dosage: 250MG IV INFUSION
  19. FERRO PLUS C [Concomitant]
     Dosage: FERRO PLUS C 1 TABLET IN THE MORNING
     Route: 048
  20. FLOLAN [Concomitant]
     Active Substance: EPOPROSTENOL SODIUM
     Dosage: DOSE IS 100MCG IN 50ML, BEING INFUSED AT 8.4ML PER HOUR THROUGH A SYRINGE DRIVER PUMP, WHICH IS THE
  21. DOCUSATE [Concomitant]
     Active Substance: DOCUSATE
  22. HEPARIN [Concomitant]
     Active Substance: HEPARIN SODIUM
     Route: 058
  23. PANTOPRAZOLE [Concomitant]
     Active Substance: PANTOPRAZOLE
     Dosage: ADMINISTERED IN PLACE OF ORAL PANTOPRAZOLE EITHER IV OR ORAL DOSE GIVEN
     Route: 042
  24. SODIUM BICARBONATE [Concomitant]
     Active Substance: SODIUM BICARBONATE
     Route: 048

REACTIONS (16)
  - Pneumonia [Fatal]
  - Dyspnoea exertional [Not Recovered/Not Resolved]
  - Heart rate decreased [Unknown]
  - Lethargy [Unknown]
  - Renal impairment [Recovering/Resolving]
  - Headache [Recovered/Resolved]
  - Rash pruritic [Not Recovered/Not Resolved]
  - Dry mouth [Recovering/Resolving]
  - Flatulence [Recovered/Resolved]
  - Diarrhoea [Recovered/Resolved]
  - Hypotension [Recovered/Resolved]
  - Fluid retention [Not Recovered/Not Resolved]
  - Haemorrhoids [Not Recovered/Not Resolved]
  - Therapy cessation [Unknown]
  - Epistaxis [Unknown]
  - Mouth haemorrhage [Unknown]

NARRATIVE: CASE EVENT DATE: 20230818
